FAERS Safety Report 23550870 (Version 1)
Quarter: 2024Q1

REPORT INFORMATION
  Report Type: Spontaneous
  Country: CA (occurrence: CA)
  Receive Date: 20240221
  Receipt Date: 20240221
  Transmission Date: 20240409
  Serious: Yes (Other)
  Sender: FDA-Public Use
  Company Number: CA-CELLTRION INC.-2019CA028623

PATIENT

DRUGS (10)
  1. INFLECTRA [Suspect]
     Active Substance: INFLIXIMAB-DYYB
     Indication: Crohn^s disease
     Dosage: 600 MG EVERY (Q) 6 WEEKS
     Route: 042
     Dates: start: 20191212
  2. INFLECTRA [Suspect]
     Active Substance: INFLIXIMAB-DYYB
     Dosage: 600 MG EVERY (Q) 6 WEEKS
     Route: 042
     Dates: start: 20200527
  3. INFLECTRA [Suspect]
     Active Substance: INFLIXIMAB-DYYB
     Dosage: 600 MG EVERY (Q) 6 WEEKS
     Route: 042
     Dates: start: 20201007
  4. INFLECTRA [Suspect]
     Active Substance: INFLIXIMAB-DYYB
     Dosage: 600 MG EVERY (Q) 6 WEEKS
     Route: 042
     Dates: start: 20201118
  5. INFLECTRA [Suspect]
     Active Substance: INFLIXIMAB-DYYB
     Dosage: 600 MG EVERY (Q) 6 WEEKS
     Route: 042
     Dates: start: 20210203
  6. INFLECTRA [Suspect]
     Active Substance: INFLIXIMAB-DYYB
     Dosage: 600 MG EVERY (Q) 6 WEEKS
     Route: 042
     Dates: start: 20220330
  7. INFLECTRA [Suspect]
     Active Substance: INFLIXIMAB-DYYB
     Dosage: 600 MG EVERY (Q) 6 WEEKS
     Route: 042
     Dates: start: 20220516
  8. INFLECTRA [Suspect]
     Active Substance: INFLIXIMAB-DYYB
     Dosage: 600 MG, EVERY 6 WEEKS
     Route: 042
     Dates: start: 20230817
  9. INFLECTRA [Suspect]
     Active Substance: INFLIXIMAB-DYYB
     Dosage: 600 MG, EVERY 6 WEEKS
     Route: 042
     Dates: start: 20231109
  10. INFLECTRA [Suspect]
     Active Substance: INFLIXIMAB-DYYB
     Dosage: 600 MG EVERY 6 WEEKS
     Route: 042
     Dates: start: 20231222

REACTIONS (17)
  - Nephrolithiasis [Not Recovered/Not Resolved]
  - Weight decreased [Unknown]
  - Hypertension [Unknown]
  - Stress [Unknown]
  - Nasopharyngitis [Recovered/Resolved]
  - Feeling abnormal [Unknown]
  - Loss of personal independence in daily activities [Unknown]
  - COVID-19 [Unknown]
  - Headache [Unknown]
  - Condition aggravated [Unknown]
  - Nasopharyngitis [Recovered/Resolved]
  - Rhinorrhoea [Unknown]
  - Cough [Unknown]
  - Off label use [Unknown]
  - Off label use [Unknown]
  - Intentional product use issue [Unknown]
  - Inappropriate schedule of product administration [Unknown]

NARRATIVE: CASE EVENT DATE: 20191212
